FAERS Safety Report 5698329-2 (Version None)
Quarter: 2008Q2

REPORT INFORMATION
  Report Type: 
  Country: None (occurrence: None)
  Receive Date: 20080408
  Receipt Date: 20080328
  Transmission Date: 20081010
  Serious: Yes (Other)
  Sender: FDA-Public Use
  Company Number: BR-PFIZER INC-2008028935

PATIENT
  Sex: Female

DRUGS (2)
  1. DEPO-PROVERA SUSPENSION/INJ [Suspect]
     Indication: CYST
  2. DEPO-PROVERA SUSPENSION/INJ [Suspect]
     Indication: OFF LABEL USE

REACTIONS (1)
  - ALTERED STATE OF CONSCIOUSNESS [None]
